FAERS Safety Report 6481162-1 (Version None)
Quarter: 2009Q4

REPORT INFORMATION
  Report Type: 
  Country: None (occurrence: None)
  Receive Date: 20091208
  Receipt Date: 20091130
  Transmission Date: 20100525
  Serious: Yes (Other)
  Sender: FDA-Public Use
  Company Number: US-ASTRAZENECA-2009SE29745

PATIENT
  Sex: Female

DRUGS (2)
  1. ARIMIDEX [Suspect]
     Indication: BREAST CANCER
     Route: 048
     Dates: start: 20030301, end: 20070101
  2. FASLODEX [Suspect]
     Indication: BREAST CANCER RECURRENT
     Dosage: MONTHLY
     Route: 030
     Dates: start: 20080901, end: 20091001

REACTIONS (2)
  - ABDOMINAL NEOPLASM [None]
  - NEOPLASM RECURRENCE [None]
